FAERS Safety Report 8842061 (Version 1)
Quarter: 2012Q4

REPORT INFORMATION
  Report Type: 
  Country: US (occurrence: US)
  Receive Date: 20121016
  Receipt Date: 20121016
  Transmission Date: 20130627
  Serious: Yes (Death)
  Sender: FDA-Public Use
  Company Number: US-EISAI INC-E2020-11511-SPO-US

PATIENT
  Sex: Female
  Weight: 38.55 kg

DRUGS (2)
  1. ARICEPT [Suspect]
     Indication: ALZHEIMER^S DISEASE
     Dosage: unknown
     Route: 048
  2. ANTIHYPERTENSIVES [Concomitant]

REACTIONS (1)
  - Dementia Alzheimer^s type [Fatal]
